FAERS Safety Report 22135012 (Version 3)
Quarter: 2023Q2

REPORT INFORMATION
  Report Type: Report from Study
  Country: US (occurrence: US)
  Receive Date: 20230324
  Receipt Date: 20230510
  Transmission Date: 20230722
  Serious: Yes (Hospitalization, Other)
  Sender: FDA-Public Use
  Company Number: US-GILEAD-2023-0621288

PATIENT
  Sex: Female

DRUGS (3)
  1. AMBRISENTAN [Suspect]
     Active Substance: AMBRISENTAN
     Indication: Pulmonary arterial hypertension
     Dosage: 10 MG, QD
     Route: 065
     Dates: start: 20220712
  2. WARFARIN [Concomitant]
     Active Substance: WARFARIN
  3. TADALAFIL [Concomitant]
     Active Substance: TADALAFIL

REACTIONS (6)
  - Renal disorder [Unknown]
  - Starvation [Unknown]
  - Haemorrhage [Unknown]
  - Dizziness [Unknown]
  - Parosmia [Unknown]
  - Coma [Recovered/Resolved]
